FAERS Safety Report 7369347-3 (Version None)
Quarter: 2011Q1

REPORT INFORMATION
  Report Type: 
  Country: None (occurrence: None)
  Receive Date: 20110323
  Receipt Date: 20110317
  Transmission Date: 20110831
  Serious: Yes (Hospitalization)
  Sender: FDA-Public Use
  Company Number: HU-ROCHE-766264

PATIENT
  Sex: Female
  Weight: 66 kg

DRUGS (1)
  1. ROACTEMRA [Suspect]
     Route: 042
     Dates: start: 20100127

REACTIONS (2)
  - DUODENITIS [None]
  - THROMBOCYTOPENIA [None]
